FAERS Safety Report 6765950-X (Version None)
Quarter: 2010Q2

REPORT INFORMATION
  Report Type: 
  Country: None (occurrence: None)
  Receive Date: 20100611
  Receipt Date: 20100609
  Transmission Date: 20101027
  Serious: Yes (Life-Threatening, Hospitalization, Disabling, Other)
  Sender: FDA-Public Use
  Company Number: JP-B.I. PHARMACEUTICALS,INC./RIDGEFIELD-2010-BP-06469NB

PATIENT
  Sex: Male
  Weight: 56.6 kg

DRUGS (2)
  1. MICARDIS [Suspect]
     Indication: HYPERTENSION
     Dosage: 20 MG
     Route: 048
     Dates: start: 20070222
  2. LIVALO [Concomitant]
     Dosage: 2 MG
     Route: 048
     Dates: start: 20090908

REACTIONS (3)
  - HYPERLIPIDAEMIA [None]
  - HYPOPHARYNGEAL CANCER [None]
  - OESOPHAGEAL CARCINOMA [None]
